FAERS Safety Report 4779612-1 (Version None)
Quarter: 2005Q3

REPORT INFORMATION
  Report Type: 
  Country: None (occurrence: None)
  Receive Date: 20050914
  Receipt Date: 20050121
  Transmission Date: 20060218
  Serious: Yes (Hospitalization)
  Sender: FDA-Public Use
  Company Number: 163-20785-05010406

PATIENT
  Age: 54 Year
  Sex: Female
  Weight: 76.2043 kg

DRUGS (10)
  1. THALOMID [Suspect]
     Indication: BREAST CANCER FEMALE
     Dosage: 100 MG, DAILY, ORAL
     Route: 048
     Dates: start: 20041122, end: 20041122
  2. THALOMID [Suspect]
     Indication: BREAST CANCER FEMALE
     Dosage: 100 MG, DAILY, ORAL
     Route: 048
     Dates: start: 20041202
  3. XELODA [Suspect]
     Indication: BREAST CANCER FEMALE
     Dosage: 3500 MG, DAILY, ORAL
     Route: 048
     Dates: start: 20041122, end: 20041122
  4. XELODA [Suspect]
     Indication: BREAST CANCER FEMALE
     Dosage: 3500 MG, DAILY, ORAL
     Route: 048
     Dates: start: 20041202
  5. MS CONTIN [Concomitant]
  6. ZOLOFT [Concomitant]
  7. CLONAZEPAM [Concomitant]
  8. CALCIUM (CALCIUM) [Concomitant]
  9. LEVOXYL [Concomitant]
  10. ATIVAN [Concomitant]

REACTIONS (5)
  - CHEST PAIN [None]
  - DYSPNOEA [None]
  - PLEURAL EFFUSION [None]
  - PLEURISY [None]
  - PYREXIA [None]
